FAERS Safety Report 5067116-0 (Version None)
Quarter: 2006Q3

REPORT INFORMATION
  Report Type: 
  Country: None (occurrence: None)
  Receive Date: 20060727
  Receipt Date: 20060718
  Transmission Date: 20061208
  Serious: Yes (Other)
  Sender: FDA-Public Use
  Company Number: 2006061578

PATIENT
  Age: 6 Year
  Sex: Male
  Weight: 18 kg

DRUGS (2)
  1. ZITHROMAX [Suspect]
     Indication: COUGH
     Dosage: ORAL
     Route: 048
     Dates: start: 20060414, end: 20060416
  2. BRICANYL [Concomitant]

REACTIONS (3)
  - ALOPECIA [None]
  - APATHY [None]
  - PRURITUS GENERALISED [None]
